FAERS Safety Report 6150752-8 (Version None)
Quarter: 2009Q2

REPORT INFORMATION
  Report Type: 
  Country: None (occurrence: None)
  Receive Date: 20090409
  Receipt Date: 20090403
  Transmission Date: 20091009
  Serious: Yes (Other)
  Sender: FDA-Public Use
  Company Number: BR-ABBOTT-09P-020-0560581-00

PATIENT
  Age: 2 Year
  Sex: Male

DRUGS (2)
  1. DEPAKOTE [Suspect]
     Indication: INFANTILE SPASMS
     Route: 048
     Dates: start: 20080101
  2. DEPAKOTE [Suspect]

REACTIONS (4)
  - LEUKOPENIA [None]
  - PARTIAL SEIZURES [None]
  - THROMBOCYTOPENIA [None]
  - VIRAL INFECTION [None]
